FAERS Safety Report 7628384-1 (Version None)
Quarter: 2011Q3

REPORT INFORMATION
  Report Type: 
  Country: None (occurrence: None)
  Receive Date: 20110722
  Receipt Date: 20110720
  Transmission Date: 20111222
  Serious: Yes (Hospitalization, Other)
  Sender: FDA-Public Use
  Company Number: US-PFIZER INC-2011165448

PATIENT
  Sex: Female
  Weight: 98 kg

DRUGS (5)
  1. CARDURA [Concomitant]
     Dosage: UNK
  2. EFFEXOR XR [Suspect]
     Indication: DEPRESSION
     Dosage: 75 MG, 1X/DAY
     Route: 048
     Dates: start: 20080101, end: 20080101
  3. EFFEXOR XR [Suspect]
     Dosage: 225 MG, 1X/DAY
     Dates: start: 20080101, end: 20080301
  4. LISINOPRIL [Concomitant]
     Dosage: UNK
  5. EFFEXOR XR [Suspect]
     Dosage: 150 MG, 1X/DAY
     Dates: start: 20080101, end: 20080101

REACTIONS (2)
  - DRUG INEFFECTIVE [None]
  - HYPERTENSION [None]
